FAERS Safety Report 4641010-9 (Version None)
Quarter: 2005Q2

REPORT INFORMATION
  Report Type: 
  Country: None (occurrence: None)
  Receive Date: 20050328
  Receipt Date: 20040429
  Transmission Date: 20051028
  Serious: Yes (Hospitalization)
  Sender: FDA-Public Use
  Company Number: WAES 0405USA00015

PATIENT
  Age: 70 Year
  Sex: Female

DRUGS (1)
  1. CANCIDAS [Suspect]
     Dosage: 50 MG/ IV
     Route: 042

REACTIONS (1)
  - BLOOD CALCIUM INCREASED [None]
